FAERS Safety Report 10202984 (Version 5)
Quarter: 2014Q3

REPORT INFORMATION
  Report Type: Report from Study
  Country: PT (occurrence: PT)
  Receive Date: 20140528
  Receipt Date: 20140722
  Transmission Date: 20150326
  Serious: Yes (Hospitalization)
  Sender: FDA-Public Use
  Company Number: PHHY2014PT065297

PATIENT
  Age: 49 Year
  Sex: Male

DRUGS (1)
  1. EXTAVIA [Suspect]
     Active Substance: INTERFERON BETA-1B
     Indication: MULTIPLE SCLEROSIS
     Dosage: 250 UG/ML, QOD
     Route: 058
     Dates: start: 20130511, end: 20140519

REACTIONS (10)
  - Necrotising fasciitis [Unknown]
  - White blood cell count abnormal [Recovered/Resolved]
  - Peripheral swelling [Recovered/Resolved]
  - Diastolic hypertension [Unknown]
  - Localised infection [Recovered/Resolved]
  - C-reactive protein abnormal [Recovered/Resolved]
  - Erythema [Recovered/Resolved]
  - Pyrexia [Recovered/Resolved]
  - Hypokinesia [Recovering/Resolving]
  - Pain in extremity [Recovered/Resolved]

NARRATIVE: CASE EVENT DATE: 20140516
